FAERS Safety Report 16802871 (Version 1)
Quarter: 2019Q3

REPORT INFORMATION
  Report Type: Spontaneous
  Country: FR (occurrence: FR)
  Receive Date: 20190913
  Receipt Date: 20190913
  Transmission Date: 20191005
  Serious: Yes (Other)
  Sender: FDA-Public Use
  Company Number: PHHY2019FR209889

PATIENT
  Age: 21 Year
  Sex: Male
  Weight: 64 kg

DRUGS (3)
  1. PARACETAMOL [Suspect]
     Active Substance: ACETAMINOPHEN
     Indication: POISONING DELIBERATE
     Dosage: 10 G, 1 TOTAL
     Route: 048
     Dates: start: 20190819
  2. IBUPROFEN. [Suspect]
     Active Substance: IBUPROFEN
     Indication: POISONING DELIBERATE
     Dosage: 20 G, 1 TOTAL
     Route: 048
     Dates: start: 20190819
  3. CETIRIZINE DIHYDROCHLORIDE [Suspect]
     Active Substance: CETIRIZINE HYDROCHLORIDE
     Indication: POISONING DELIBERATE
     Dosage: 100 MG, 1 TOTAL
     Route: 048
     Dates: start: 20190819

REACTIONS (1)
  - Haemolysis [Not Recovered/Not Resolved]

NARRATIVE: CASE EVENT DATE: 20190819
